FAERS Safety Report 4888001-0 (Version None)
Quarter: 2006Q1

REPORT INFORMATION
  Report Type: 
  Country: None (occurrence: None)
  Receive Date: 20060123
  Receipt Date: 20051005
  Transmission Date: 20060701
  Serious: Yes (Hospitalization)
  Sender: FDA-Public Use
  Company Number: US-MERCK-0510USA03416

PATIENT
  Age: 28 Year
  Sex: Male
  Weight: 123 kg

DRUGS (3)
  1. VIOXX [Suspect]
     Indication: JOINT INJURY
     Route: 048
     Dates: start: 20020101, end: 20040101
  2. VICODIN [Concomitant]
     Route: 065
  3. NEURONTIN [Concomitant]
     Route: 065

REACTIONS (1)
  - CORONARY ARTERY OCCLUSION [None]
